FAERS Safety Report 11148339 (Version 2)
Quarter: 2015Q2

REPORT INFORMATION
  Report Type: Spontaneous
  Country: GB (occurrence: GB)
  Receive Date: 20150529
  Receipt Date: 20150630
  Transmission Date: 20150821
  Serious: Yes (Death, Congenital Anomaly, Other)
  Sender: FDA-Public Use
  Company Number: GB-AUROBINDO-AUR-APL-2015-04655

PATIENT
  Sex: Male
  Weight: 1.52 kg

DRUGS (5)
  1. OMEPRAZOLE. [Concomitant]
     Active Substance: OMEPRAZOLE
     Indication: PRODUCT USED FOR UNKNOWN INDICATION
     Route: 065
  2. FOLIC ACID. [Concomitant]
     Active Substance: FOLIC ACID
     Indication: PRODUCT USED FOR UNKNOWN INDICATION
     Dosage: 5 MG, UNK
     Route: 064
  3. FOLIC ACID. [Concomitant]
     Active Substance: FOLIC ACID
     Route: 064
  4. ASPIRIN. [Concomitant]
     Active Substance: ASPIRIN
     Indication: PRODUCT USED FOR UNKNOWN INDICATION
     Route: 065
  5. GABAPENTIN. [Suspect]
     Active Substance: GABAPENTIN
     Indication: EPILEPSY
     Dosage: 1100MG MANE, 800MG MIDDAY, 800MG NOCTE
     Route: 064
     Dates: start: 20140708

REACTIONS (13)
  - Single umbilical artery [Not Recovered/Not Resolved]
  - Placental infarction [Not Recovered/Not Resolved]
  - Pyelocaliectasis [Not Recovered/Not Resolved]
  - Foetal placental thrombosis [Not Recovered/Not Resolved]
  - Small for dates baby [Not Recovered/Not Resolved]
  - Amniocentesis abnormal [Not Recovered/Not Resolved]
  - Congenital hydronephrosis [Fatal]
  - Congenital bladder anomaly [Not Recovered/Not Resolved]
  - Placental insufficiency [Not Recovered/Not Resolved]
  - Cryptorchism [Not Recovered/Not Resolved]
  - Foetal exposure during pregnancy [Unknown]
  - Foetal death [Fatal]
  - Foetal growth restriction [Fatal]
